FAERS Safety Report 24295841 (Version 1)
Quarter: 2024Q3

REPORT INFORMATION
  Report Type: Report from Study
  Country: US (occurrence: US)
  Receive Date: 20240908
  Receipt Date: 20240908
  Transmission Date: 20241016
  Serious: Yes (Other)
  Sender: ABBVIE
  Company Number: US-ABBVIE-5907886

PATIENT
  Age: 58 Year
  Sex: Male

DRUGS (1)
  1. RINVOQ [Suspect]
     Active Substance: UPADACITINIB
     Indication: Dermatitis atopic
     Route: 048
     Dates: start: 20230615

REACTIONS (2)
  - Dizziness [Not Recovered/Not Resolved]
  - Cerebrospinal fluid leakage [Not Recovered/Not Resolved]

NARRATIVE: CASE EVENT DATE: 20240531
